FAERS Safety Report 4569130-8 (Version None)
Quarter: 2005Q1

REPORT INFORMATION
  Report Type: 
  Country: None (occurrence: None)
  Receive Date: 20050126
  Receipt Date: 20050112
  Transmission Date: 20050727
  Serious: Yes (Hospitalization)
  Sender: FDA-Public Use
  Company Number: 2004-03965

PATIENT
  Age: 82 Year
  Sex: Male

DRUGS (3)
  1. IMMUCYST (BCG - IT (CONNAUGHT) ), AVENTIS PASTEUR LTD., LOT NOT REP, I [Suspect]
     Indication: BLADDER CANCER
     Dosage: 80 MG
     Route: 043
     Dates: start: 20041118, end: 20041125
  2. CEFOTIAM HYDROCHLORIDE [Concomitant]
  3. CIPROFLOXACIN HYDROCHLORIDE [Concomitant]

REACTIONS (11)
  - ARTHRALGIA [None]
  - DYSURIA [None]
  - ESCHERICHIA SEPSIS [None]
  - HOT FLUSH [None]
  - HYPERSENSITIVITY [None]
  - MYALGIA [None]
  - OEDEMA PERIPHERAL [None]
  - PAIN [None]
  - PYREXIA [None]
  - RENAL FAILURE ACUTE [None]
  - RENAL IMPAIRMENT [None]
